FAERS Safety Report 10238708 (Version 1)
Quarter: 2014Q2

REPORT INFORMATION
  Report Type: Spontaneous
  Country: None (occurrence: US)
  Receive Date: 20140616
  Receipt Date: 20140616
  Transmission Date: 20141212
  Serious: No
  Sender: FDA-Public Use
  Company Number: US-TEVA-488316USA

PATIENT
  Age: 19 Year
  Sex: Male

DRUGS (2)
  1. CLARAVIS [Suspect]
     Indication: ACNE
     Dosage: 60 MILLIGRAM DAILY;
     Route: 048
     Dates: start: 20131218
  2. ZYRTEC [Concomitant]

REACTIONS (1)
  - Urticaria [Recovered/Resolved]
